FAERS Safety Report 7991674-7 (Version None)
Quarter: 2011Q4

REPORT INFORMATION
  Report Type: 
  Country: None (occurrence: None)
  Receive Date: 20111219
  Receipt Date: 20111206
  Transmission Date: 20120403
  Serious: Yes (Hospitalization)
  Sender: FDA-Public Use
  Company Number: PHFR2011GB007015

PATIENT
  Sex: Female

DRUGS (1)
  1. CLOZARIL [Suspect]
     Indication: SCHIZOPHRENIA
     Route: 048
     Dates: start: 20040217

REACTIONS (4)
  - DEHYDRATION [None]
  - CIRCULATORY COLLAPSE [None]
  - RENAL IMPAIRMENT [None]
  - CONFUSIONAL STATE [None]
